FAERS Safety Report 7326574-9 (Version None)
Quarter: 2011Q1

REPORT INFORMATION
  Report Type: 
  Country: None (occurrence: None)
  Receive Date: 20110302
  Receipt Date: 20110221
  Transmission Date: 20110831
  Serious: Yes (Disabling)
  Sender: FDA-Public Use
  Company Number: US-MERCK-1102USA02523

PATIENT
  Sex: Female

DRUGS (1)
  1. FOSAMAX [Suspect]
     Route: 048
     Dates: start: 20050101, end: 20090101

REACTIONS (3)
  - BONE DISORDER [None]
  - JOINT INJURY [None]
  - OSTEONECROSIS [None]
